FAERS Safety Report 7818654-6 (Version None)
Quarter: 2011Q4

REPORT INFORMATION
  Report Type: 
  Country: None (occurrence: None)
  Receive Date: 20111018
  Receipt Date: 20111011
  Transmission Date: 20120403
  Serious: Yes (Hospitalization)
  Sender: FDA-Public Use
  Company Number: US-BIOGENIDEC-2011BI017603

PATIENT
  Age: 62 Year
  Sex: Female

DRUGS (1)
  1. TYSABRI [Suspect]
     Indication: MULTIPLE SCLEROSIS
     Route: 042
     Dates: start: 20090515

REACTIONS (6)
  - LOWER LIMB FRACTURE [None]
  - PNEUMONIA [None]
  - ANKLE FRACTURE [None]
  - INFECTION [None]
  - SKIN LESION [None]
  - FOOT FRACTURE [None]
